FAERS Safety Report 9425052 (Version 2)
Quarter: 2013Q3

REPORT INFORMATION
  Report Type: Spontaneous
  Country: PL (occurrence: PL)
  Receive Date: 20130729
  Receipt Date: 20130806
  Transmission Date: 20140515
  Serious: Yes (Other)
  Sender: FDA-Public Use
  Company Number: PL-PFIZER INC-2013217665

PATIENT
  Age: 78 Year
  Sex: Male

DRUGS (7)
  1. XANAX [Suspect]
     Dosage: 1 MG, AT NIGHT AND 0.5 MG AT DAYTIME
  2. XANAX [Suspect]
     Dosage: 1 MG, AT NIGHT
  3. PRESTARIUM [Concomitant]
     Dosage: UNK
  4. UROSEPT [Concomitant]
     Dosage: UNK
  5. RAPHACHOLIN [Concomitant]
     Dosage: UNK
  6. BISOCARD [Concomitant]
  7. HEPATIL [Concomitant]

REACTIONS (9)
  - Myocardial infarction [Not Recovered/Not Resolved]
  - Arrhythmia [Not Recovered/Not Resolved]
  - Cholelithiasis [Not Recovered/Not Resolved]
  - Feeling abnormal [Not Recovered/Not Resolved]
  - Gait disturbance [Not Recovered/Not Resolved]
  - Asthenia [Not Recovered/Not Resolved]
  - Dysgeusia [Not Recovered/Not Resolved]
  - Tongue coated [Not Recovered/Not Resolved]
  - Sleep disorder [Not Recovered/Not Resolved]
